FAERS Safety Report 6695488-X (Version None)
Quarter: 2010Q2

REPORT INFORMATION
  Report Type: 
  Country: None (occurrence: None)
  Receive Date: 20100425
  Receipt Date: 20100422
  Transmission Date: 20101027
  Serious: Yes (Other)
  Sender: FDA-Public Use
  Company Number: FR-BRISTOL-MYERS SQUIBB COMPANY-15072739

PATIENT
  Age: 38 Year
  Sex: Male

DRUGS (3)
  1. REYATAZ [Suspect]
     Indication: HIV INFECTION
     Dates: start: 20100301, end: 20100401
  2. KIVEXA [Suspect]
  3. NORVIR [Suspect]

REACTIONS (2)
  - HYPERBILIRUBINAEMIA [None]
  - RENAL FAILURE [None]
